FAERS Safety Report 15358782 (Version 1)
Quarter: 2018Q3

REPORT INFORMATION
  Report Type: Report from Study
  Country: None (occurrence: RU)
  Receive Date: 20180906
  Receipt Date: 20180906
  Transmission Date: 20181010
  Serious: Yes (Hospitalization)
  Sender: FDA-Public Use
  Company Number: RU-ABBVIE-18P-251-2469158-00

PATIENT
  Age: 68 Year
  Sex: Female
  Weight: 88 kg

DRUGS (15)
  1. AZACITIDINE. [Suspect]
     Active Substance: AZACITIDINE
     Indication: ACUTE MYELOID LEUKAEMIA
     Dosage: DAY 1?7 OF EACH 28?DAY CYCLE
     Route: 058
     Dates: start: 20180219
  2. LEUCOSTIM [Concomitant]
     Active Substance: FILGRASTIM
     Indication: NEUTROPENIA
     Route: 058
     Dates: start: 20180423, end: 20180424
  3. VENETOCLAX. [Suspect]
     Active Substance: VENETOCLAX
     Indication: ACUTE MYELOID LEUKAEMIA
     Route: 048
     Dates: start: 20180219, end: 20180219
  4. ALLOPURINOL. [Concomitant]
     Active Substance: ALLOPURINOL
     Indication: PROPHYLAXIS
     Route: 048
     Dates: start: 20180217, end: 20180226
  5. LEUCOSTIM [Concomitant]
     Active Substance: FILGRASTIM
     Route: 058
     Dates: start: 20180516, end: 20180517
  6. LEUCOSTIM [Concomitant]
     Active Substance: FILGRASTIM
     Route: 058
     Dates: start: 20180528, end: 20180529
  7. METFORMIN [Concomitant]
     Active Substance: METFORMIN HYDROCHLORIDE
     Indication: GLUCOSE TOLERANCE IMPAIRED
     Route: 048
     Dates: start: 20171001
  8. LEUCOSTIM [Concomitant]
     Active Substance: FILGRASTIM
     Route: 058
     Dates: start: 20180523, end: 20180524
  9. LEUCOSTIM [Concomitant]
     Active Substance: FILGRASTIM
     Route: 058
     Dates: start: 20180731, end: 20180804
  10. DIABETON [Concomitant]
     Active Substance: GLICLAZIDE
     Indication: TYPE 2 DIABETES MELLITUS
     Route: 048
     Dates: start: 20180222
  11. VENETOCLAX. [Suspect]
     Active Substance: VENETOCLAX
     Route: 048
     Dates: start: 20180220, end: 20180220
  12. NORMAL SALINE SOLUTION (0.9% SODIUM CHLORIDE) [Concomitant]
     Indication: PROPHYLAXIS
     Route: 042
     Dates: start: 20180219, end: 20180227
  13. VENETOCLAX. [Suspect]
     Active Substance: VENETOCLAX
     Route: 048
     Dates: start: 20180221, end: 20180829
  14. LEUCOSTIM [Concomitant]
     Active Substance: FILGRASTIM
     Route: 058
     Dates: start: 20180621, end: 20180627
  15. LEUCOSTIM [Concomitant]
     Active Substance: FILGRASTIM
     Route: 058
     Dates: start: 20180702, end: 20180703

REACTIONS (1)
  - Thrombocytopenia [Recovered/Resolved]

NARRATIVE: CASE EVENT DATE: 20180829
